FAERS Safety Report 23286977 (Version 1)
Quarter: 2023Q4

REPORT INFORMATION
  Report Type: Spontaneous
  Country: US (occurrence: None)
  Receive Date: 20231209
  Receipt Date: 20231209
  Transmission Date: 20240109
  Serious: Yes (Life-Threatening, Other)
  Sender: FDA-Public Use
  Company Number: None

PATIENT
  Age: 66 Year
  Sex: Female
  Weight: 135 kg

DRUGS (8)
  1. DEFINITY [Suspect]
     Active Substance: PERFLUTREN
     Indication: X-ray with contrast
     Route: 042
     Dates: start: 20231206, end: 20231206
  2. TELMISARTAN [Concomitant]
     Active Substance: TELMISARTAN
  3. NEBIVOLOL [Concomitant]
     Active Substance: NEBIVOLOL
  4. HYDRALAZINE [Concomitant]
     Active Substance: HYDRALAZINE HYDROCHLORIDE
  5. PRAZOSIN [Concomitant]
     Active Substance: PRAZOSIN
  6. METFORMIN [Concomitant]
     Active Substance: METFORMIN HYDROCHLORIDE
  7. CALCITRIOL [Concomitant]
     Active Substance: CALCITRIOL
  8. VENTOLIN [Concomitant]
     Active Substance: ALBUTEROL SULFATE

REACTIONS (7)
  - Hypertensive crisis [None]
  - Drug hypersensitivity [None]
  - Loss of consciousness [None]
  - Back pain [None]
  - Oxygen saturation decreased [None]
  - Dysstasia [None]
  - Drug monitoring procedure not performed [None]

NARRATIVE: CASE EVENT DATE: 20231206
